FAERS Safety Report 14907707 (Version 1)
Quarter: 2018Q2

REPORT INFORMATION
  Report Type: Spontaneous
  Country: US (occurrence: US)
  Receive Date: 20180517
  Receipt Date: 20180517
  Transmission Date: 20180711
  Serious: No
  Sender: FDA-Public Use
  Company Number: US-VANDA PHARMACEUTICALS, INC-2017ILOUS001664

PATIENT
  Sex: Male
  Weight: 65.76 kg

DRUGS (6)
  1. ALOE VERA DRINK [Concomitant]
     Indication: PRODUCT USED FOR UNKNOWN INDICATION
  2. FANAPT [Suspect]
     Active Substance: ILOPERIDONE
     Indication: HALLUCINATION, AUDITORY
     Dosage: 4 MG, BID EVERY 12 HOURS
     Route: 048
     Dates: start: 20140427
  3. OMEPRAZOLE. [Concomitant]
     Active Substance: OMEPRAZOLE
     Indication: PRODUCT USED FOR UNKNOWN INDICATION
  4. PHION BOOSTER LIQUID [Concomitant]
     Indication: PRODUCT USED FOR UNKNOWN INDICATION
  5. LEXAPRO [Concomitant]
     Active Substance: ESCITALOPRAM OXALATE
     Indication: PRODUCT USED FOR UNKNOWN INDICATION
  6. FANAPT [Suspect]
     Active Substance: ILOPERIDONE
     Dosage: UNK

REACTIONS (1)
  - Retrograde ejaculation [Unknown]
